FAERS Safety Report 21225338 (Version 10)
Quarter: 2023Q1

REPORT INFORMATION
  Report Type: Report from Study
  Country: IT (occurrence: IT)
  Receive Date: 20220817
  Receipt Date: 20230222
  Transmission Date: 20230417
  Serious: Yes (Hospitalization)
  Sender: FDA-Public Use
  Company Number: IT-AMGEN-ITACT2022139863

PATIENT
  Age: 6 Year
  Sex: Male

DRUGS (28)
  1. CARFILZOMIB [Suspect]
     Active Substance: CARFILZOMIB
     Indication: Acute lymphocytic leukaemia
     Dosage: 38.8 MILLIGRAM
     Route: 040
     Dates: start: 20220622
  2. DEXAMETHASONE [Concomitant]
     Active Substance: DEXAMETHASONE
     Dosage: 1-4 UNK,0.96-12 MILLIGRAM, 50-85 UNK, AND 1600 UNK
     Dates: start: 20220707
  3. VINCRISTINE [Concomitant]
     Active Substance: VINCRISTINE
     Dosage: 2-51 MILLIGRAM
     Route: 040
     Dates: start: 20220713, end: 20220818
  4. METHOTREXATE [Concomitant]
     Active Substance: METHOTREXATE
     Dosage: 12 MILLIGRAM
     Route: 040
     Dates: start: 20220720, end: 20220818
  5. PEG/L-ASPARAGINASE [Concomitant]
     Active Substance: PEGASPARGASE
     Dosage: UNK
     Dates: start: 20180709, end: 20220818
  6. ALLOPURINOL [Concomitant]
     Active Substance: ALLOPURINOL
     Dosage: 150 MILLIGRAM
     Route: 040
     Dates: start: 20220621, end: 20220902
  7. ALBUMIN HUMAN [Concomitant]
     Active Substance: ALBUMIN HUMAN
     Dosage: 50 MILLILITER
     Route: 042
     Dates: start: 20220708, end: 20220810
  8. AT III [Concomitant]
     Dosage: 500 UNK
     Route: 045
     Dates: start: 20220708, end: 20220708
  9. HYDROGEN PEROXIDE [Concomitant]
     Active Substance: HYDROGEN PEROXIDE
     Dosage: 4 MILLILITER
     Route: 048
     Dates: start: 20220708, end: 20220807
  10. OMEPRAZOLE [Concomitant]
     Active Substance: OMEPRAZOLE
     Dosage: 20 MILLIGRAM
     Dates: start: 20220617, end: 20220901
  11. AMILORIDE HYDROCHLORIDE\HYDROCHLOROTHIAZIDE [Concomitant]
     Active Substance: AMILORIDE HYDROCHLORIDE\HYDROCHLOROTHIAZIDE
     Dosage: 1.25 MILLIGRAM
     Route: 040
     Dates: start: 20220626
  12. ONDANSETRON [Concomitant]
     Active Substance: ONDANSETRON
     Dosage: 02 MILLIGRAM
     Dates: start: 20220713, end: 20220714
  13. BECLOMETHASONE DIPROPIONATE [Concomitant]
     Active Substance: BECLOMETHASONE DIPROPIONATE
     Dosage: 1 MILLIGRAM
     Route: 040
     Dates: start: 20220714, end: 20220714
  14. SULFAMETHOXAZOLE\TRIMETHOPRIM [Concomitant]
     Active Substance: SULFAMETHOXAZOLE\TRIMETHOPRIM
     Dosage: 05 MILLIGRAM
     Route: 048
     Dates: start: 20220709
  15. FLUOCINOLONE ACETONIDE;LIDOCAINE;NEOMYCIN [Concomitant]
     Dosage: 0.5 MILLIGRAM
     Route: 048
     Dates: start: 20220705, end: 20220714
  16. DEXTROSE [Concomitant]
     Active Substance: DEXTROSE
     Dosage: 500 MILLILITER
     Route: 042
     Dates: start: 20220804, end: 20220805
  17. AMLODIPINE [Concomitant]
     Active Substance: AMLODIPINE BESYLATE
     Dosage: UNK
     Dates: start: 20220707
  18. CORTISONE ACETATE [Concomitant]
     Active Substance: CORTISONE ACETATE
     Dosage: 1 UNK
     Route: 048
     Dates: start: 20220728, end: 20220812
  19. MERCAPTOPURINE [Concomitant]
     Active Substance: MERCAPTOPURINE
     Dosage: UNK
     Dates: start: 20220804, end: 20220816
  20. LASIX [Concomitant]
     Active Substance: FUROSEMIDE
     Dosage: 25-50 MILLIGRAM
     Route: 042
     Dates: start: 20220804, end: 20220810
  21. POLYETHYLENE GLYCOLS [Concomitant]
     Active Substance: POLYETHYLENE GLYCOLS
     Dosage: 2.5 MILLIGRAM AND 1 UNK
     Route: 048
     Dates: start: 20220714
  22. TOBRADEX [Concomitant]
     Active Substance: DEXAMETHASONE\TOBRAMYCIN
     Dosage: 2.5 MILLIGRAM
     Route: 048
     Dates: start: 20220728, end: 20220731
  23. MESNA [Concomitant]
     Active Substance: MESNA
     Dosage: 1500 MILLILITER
     Route: 042
     Dates: start: 20220804, end: 20220804
  24. CYCLOPHOSPHAMIDE [Concomitant]
     Active Substance: CYCLOPHOSPHAMIDE
     Dosage: 51 MILLIGRAM
     Route: 042
     Dates: start: 20220702, end: 20221217
  25. SODIUM CHLORIDE [Concomitant]
     Active Substance: SODIUM CHLORIDE
     Dosage: UNK
     Dates: start: 20220714, end: 20220804
  26. ACETAMINOPHEN [Concomitant]
     Active Substance: ACETAMINOPHEN
     Dosage: 2.5-25 MILLIGRAM
     Dates: start: 20220714, end: 20220804
  27. MYCOSTATIN [Concomitant]
     Active Substance: NYSTATIN
     Dosage: UNK
     Route: 048
     Dates: start: 20220718
  28. CYTARABINE [Concomitant]
     Active Substance: CYTARABINE
     Dosage: 12-51 MILLIGRAM
     Dates: start: 20220804, end: 20220814

REACTIONS (1)
  - Thrombocytopenia [Recovered/Resolved]

NARRATIVE: CASE EVENT DATE: 20220806
